FAERS Safety Report 4411474-4 (Version None)
Quarter: 2004Q2

REPORT INFORMATION
  Report Type: 
  Country: None (occurrence: None)
  Receive Date: 20040630
  Receipt Date: 20040526
  Transmission Date: 20050107
  Serious: No
  Sender: FDA-Public Use
  Company Number: 04P-163-0262139-00

PATIENT
  Age: 65 Year
  Sex: Female
  Weight: 113.8529 kg

DRUGS (16)
  1. HUMIRA [Suspect]
     Indication: RHEUMATOID ARTHRITIS
     Dosage: 40 MG, SUBCUTANEOUS
     Route: 058
     Dates: start: 20040415
  2. AMOXICILLIN [Suspect]
     Indication: CARDIAC MURMUR
     Dosage: 3 GM, 1 IN 1 D, PER ORAL
     Route: 048
     Dates: start: 20040525, end: 20040525
  3. AMOXICILLIN [Suspect]
     Indication: DENTAL TREATMENT
     Dosage: 3 GM, 1 IN 1 D, PER ORAL
     Route: 048
     Dates: start: 20040525, end: 20040525
  4. AMOXICILLIN [Suspect]
     Indication: PROPHYLAXIS
     Dosage: 3 GM, 1 IN 1 D, PER ORAL
     Route: 048
     Dates: start: 20040525, end: 20040525
  5. MULTI-VITAMINS [Concomitant]
  6. LEKOVIT CA [Concomitant]
  7. PREDNISONE TAB [Concomitant]
  8. POTASSIUM CHLORIDE [Concomitant]
  9. SUCRALFATE [Concomitant]
  10. ALLOPURINOL [Concomitant]
  11. HYDROXYCHLOROQUINE PHOSPHATE [Concomitant]
  12. LOSARTAN POTASSIUM [Concomitant]
  13. METOLAZONE [Concomitant]
  14. ACETYLSALIYCLIC ACID [Concomitant]
  15. FUROSEMIDE [Concomitant]
  16. OXYBUTYNIN HYDROCHLORIDE [Concomitant]

REACTIONS (5)
  - BURNING SENSATION [None]
  - ERYTHEMA [None]
  - PRURITUS [None]
  - RASH [None]
  - TOOTH REPAIR [None]
